FAERS Safety Report 22178662 (Version 1)
Quarter: 2023Q2

REPORT INFORMATION
  Report Type: Spontaneous
  Country: US (occurrence: US)
  Receive Date: 20230405
  Receipt Date: 20230405
  Transmission Date: 20230721
  Serious: No
  Sender: FDA-Public Use
  Company Number: US-BAUSCH-BL-2023-005019

PATIENT
  Age: 62 Year
  Sex: Male

DRUGS (2)
  1. RETIN-A MICRO [Suspect]
     Active Substance: TRETINOIN
     Indication: Product used for unknown indication
     Route: 061
  2. RETIN-A MICRO [Suspect]
     Active Substance: TRETINOIN

REACTIONS (1)
  - Application site irritation [Unknown]
